FAERS Safety Report 6787992-0 (Version None)
Quarter: 2010Q2

REPORT INFORMATION
  Report Type: 
  Country: None (occurrence: None)
  Receive Date: 20100623
  Receipt Date: 20071210
  Transmission Date: 20101027
  Serious: No
  Sender: FDA-Public Use
  Company Number: US-PFIZER INC-2007104003

PATIENT
  Age: 19 Year
  Sex: Female
  Weight: 52.3 kg

DRUGS (2)
  1. DEPO-PROVERA SUSPENSION/INJ [Suspect]
     Indication: CONTRACEPTION
     Dates: start: 20070101
  2. LOESTRIN 1.5/30 [Suspect]
     Indication: CONTRACEPTION
     Dates: start: 20070101, end: 20071209

REACTIONS (3)
  - AMENORRHOEA [None]
  - CONTUSION [None]
  - VAGINAL HAEMORRHAGE [None]
